FAERS Safety Report 13024745 (Version 1)
Quarter: 2016Q4

REPORT INFORMATION
  Report Type: Spontaneous
  Country: US (occurrence: US)
  Receive Date: 20161213
  Receipt Date: 20161213
  Transmission Date: 20170207
  Serious: No
  Sender: FDA-Public Use
  Company Number: US-ROCHE-1767725

PATIENT
  Age: 56 Year
  Sex: Male

DRUGS (4)
  1. VASOPRESSIN. [Concomitant]
     Active Substance: VASOPRESSIN
     Route: 065
  2. ACTILYSE [Suspect]
     Active Substance: ALTEPLASE
     Indication: PULMONARY EMBOLISM
     Dosage: 100 MG OVER 2 HOURS WAS ADMINISTERED APPROXIMATELY 10 MINUTES.  THE INITIAL 10 MG OF THE ALTEPLASE W
     Route: 042
  3. EPINEPHRINE. [Concomitant]
     Active Substance: EPINEPHRINE
  4. NOREPINEPHRINE [Concomitant]
     Active Substance: NOREPINEPHRINE\NOREPINEPHRINE BITARTRATE

REACTIONS (2)
  - Mouth haemorrhage [Unknown]
  - Epistaxis [Unknown]
